FAERS Safety Report 16995664 (Version 1)
Quarter: 2019Q4

REPORT INFORMATION
  Report Type: Spontaneous
  Country: FR (occurrence: FR)
  Receive Date: 20191105
  Receipt Date: 20191105
  Transmission Date: 20200122
  Serious: Yes (Other)
  Sender: FDA-Public Use
  Company Number: FR-PFM-2019-13303

PATIENT

DRUGS (2)
  1. PROPRANOLOL [Suspect]
     Active Substance: PROPRANOLOL HYDROCHLORIDE
     Indication: HIGH RISK SEXUAL BEHAVIOUR
     Dosage: 1 DF DAILY
     Route: 065
     Dates: start: 201909
  2. DOXYLAMINE SUCCINATE. [Suspect]
     Active Substance: DOXYLAMINE SUCCINATE
     Indication: HIGH RISK SEXUAL BEHAVIOUR
     Dosage: 1 DF AS NECESSARY
     Route: 065
     Dates: start: 201909

REACTIONS (4)
  - Off label use [Unknown]
  - Drug abuse [Not Recovered/Not Resolved]
  - Product use in unapproved indication [Unknown]
  - Product use issue [Unknown]

NARRATIVE: CASE EVENT DATE: 201909
